FAERS Safety Report 13735403 (Version 2)
Quarter: 2017Q3

REPORT INFORMATION
  Report Type: Spontaneous
  Country: US (occurrence: US)
  Receive Date: 20170710
  Receipt Date: 20170824
  Transmission Date: 20171127
  Serious: No
  Sender: FDA-Public Use
  Company Number: US-PFIZER INC-2017294763

PATIENT
  Age: 63 Year
  Sex: Female

DRUGS (1)
  1. METHOTREXATE SODIUM. [Suspect]
     Active Substance: METHOTREXATE SODIUM
     Dosage: 20 MG, WEEKLY

REACTIONS (10)
  - Joint swelling [Unknown]
  - Joint crepitation [Unknown]
  - Nail disorder [Unknown]
  - Nodal osteoarthritis [Unknown]
  - Musculoskeletal stiffness [Recovering/Resolving]
  - Arthralgia [Unknown]
  - Fear of injection [Unknown]
  - Synovitis [Unknown]
  - Fatigue [Recovering/Resolving]
  - Finger deformity [Unknown]
